FAERS Safety Report 20876685 (Version 2)
Quarter: 2022Q2

REPORT INFORMATION
  Report Type: Spontaneous
  Country: FR (occurrence: FR)
  Receive Date: 20220526
  Receipt Date: 20220629
  Transmission Date: 20220721
  Serious: Yes (Other)
  Sender: FDA-Public Use
  Company Number: None

PATIENT
  Age: 62 Year
  Sex: Male

DRUGS (8)
  1. CEFTRIAXONE [Suspect]
     Active Substance: CEFTRIAXONE
     Indication: Infection
     Dosage: CEFTRIAXONE BASE , UNIT DOSE : 1 G , DURATION : 8 DAYS , FREQUENCY TIME : 1 DAY
     Route: 042
     Dates: start: 20210524, end: 20210601
  2. FLUCONAZOLE [Suspect]
     Active Substance: FLUCONAZOLE
     Indication: Infection
     Dosage: 400 MG , DURATION : 8 DAYS , FREQUENCY TIME : 24 HOURS
     Route: 042
     Dates: start: 20210524, end: 20210601
  3. DEXTROSE\POTASSIUM CHLORIDE\SODIUM CHLORIDE [Suspect]
     Active Substance: DEXTROSE\POTASSIUM CHLORIDE\SODIUM CHLORIDE
     Indication: Fluid replacement
     Dosage: SOLUTION INJECTABLE POLYIONIQUE , UNIT DOSE : 2000 ML , DURATION : 8 DAYS , FREQUENCY TIME : 24 HOUR
     Route: 042
     Dates: start: 20210524, end: 20210601
  4. ESOMEPRAZOLE SODIUM [Suspect]
     Active Substance: ESOMEPRAZOLE SODIUM
     Indication: Ulcer
     Dosage: POWDER FOR SOLUTION FOR INJECTION OR INFUSION , STRENGTH : 40 MG , UNIT DOSE : 160 MG , DURATION : 8
     Route: 042
     Dates: start: 20210524, end: 20210601
  5. ACETAMINOPHEN [Suspect]
     Active Substance: ACETAMINOPHEN
     Indication: Pain
     Dosage: 1 G , DURATION : 10 DAYS , FREQUENCY TIME : 6 HOURS , DURATION : 10 DAYS
     Route: 042
     Dates: start: 20210524, end: 20210603
  6. METRONIDAZOLE [Suspect]
     Active Substance: METRONIDAZOLE
     Indication: Infection
     Dosage: 500 MG , DURATION : 8 DAYS , FREQUENCY TIME : 8 HOURS
     Route: 042
     Dates: start: 20210524, end: 20210601
  7. TRAMADOL [Suspect]
     Active Substance: TRAMADOL
     Indication: Pain
     Dosage: UNIT DOSE : 150 MG , FREQUENCY TIME : 24 HOURS , DURATION : 10 DAYS
     Route: 042
     Dates: start: 20210524, end: 20210603
  8. OLIMEL E [Suspect]
     Active Substance: AMINO ACIDS\DEXTROSE\ELECTROLYTES NOS\SOYBEAN OIL
     Indication: Parenteral nutrition
     Dosage: UNIT DOSE : 1500 ML ,FREQUENCY TIME : 1 DAYS , DURATION : 3 DAYS
     Route: 042
     Dates: start: 20210529, end: 20210601

REACTIONS (1)
  - Superficial vein thrombosis [Recovering/Resolving]

NARRATIVE: CASE EVENT DATE: 20210601
